FAERS Safety Report 7674851-4 (Version None)
Quarter: 2011Q3

REPORT INFORMATION
  Report Type: 
  Country: None (occurrence: None)
  Receive Date: 20110808
  Receipt Date: 20110722
  Transmission Date: 20111222
  Serious: Yes (Disabling, Other)
  Sender: FDA-Public Use
  Company Number: 2011MA009518

PATIENT
  Sex: Male

DRUGS (1)
  1. METOCLOPRAMIDE [Suspect]

REACTIONS (22)
  - PAIN [None]
  - AKATHISIA [None]
  - METABOLIC DISORDER [None]
  - IMPAIRED WORK ABILITY [None]
  - NEUROPATHY PERIPHERAL [None]
  - DEPRESSION [None]
  - STEREOTYPY [None]
  - FAMILY STRESS [None]
  - TOXICITY TO VARIOUS AGENTS [None]
  - ANHEDONIA [None]
  - PARKINSON'S DISEASE [None]
  - EXTRAPYRAMIDAL DISORDER [None]
  - MOVEMENT DISORDER [None]
  - TARDIVE DYSKINESIA [None]
  - ECONOMIC PROBLEM [None]
  - ACTIVITIES OF DAILY LIVING IMPAIRED [None]
  - MENTAL DISORDER [None]
  - SUICIDAL IDEATION [None]
  - NERVOUS SYSTEM DISORDER [None]
  - DEFORMITY [None]
  - RESTLESS LEGS SYNDROME [None]
  - ANXIETY [None]
